FAERS Safety Report 5859644-2 (Version None)
Quarter: 2008Q3

REPORT INFORMATION
  Report Type: 
  Country: None (occurrence: None)
  Receive Date: 20080827
  Receipt Date: 20050305
  Transmission Date: 20090109
  Serious: Yes (Hospitalization)
  Sender: FDA-Public Use
  Company Number: US-JNJFOC-20080805457

PATIENT
  Age: 57 Year
  Sex: Female
  Weight: 61.1 kg

DRUGS (4)
  1. DOXIL [Suspect]
     Indication: MULTIPLE MYELOMA
     Dosage: CYCLE 1
     Route: 042
  2. BORTEZOMIB [Suspect]
     Indication: MULTIPLE MYELOMA
     Dosage: CYCLE 1
     Route: 042
  3. DEODORIZED TINCTURE OF OPIUM [Concomitant]
     Indication: ANTIDIARRHOEAL SUPPORTIVE CARE
     Route: 065
  4. ATENOLOL [Concomitant]
     Route: 065

REACTIONS (4)
  - CONFUSIONAL STATE [None]
  - HYPOXIA [None]
  - PNEUMONIA [None]
  - SYNCOPE [None]
